FAERS Safety Report 5611123-3 (Version None)
Quarter: 2008Q1

REPORT INFORMATION
  Report Type: 
  Country: None (occurrence: None)
  Receive Date: 20080201
  Receipt Date: 20080121
  Transmission Date: 20080703
  Serious: Yes (Life-Threatening, Hospitalization, Disabling)
  Sender: FDA-Public Use
  Company Number: GB-AMGEN-US261888

PATIENT
  Age: 46 Year
  Sex: Male
  Weight: 71 kg

DRUGS (8)
  1. ENBREL [Suspect]
     Indication: RHEUMATOID ARTHRITIS
     Route: 058
     Dates: start: 20050906, end: 20060330
  2. MABTHERA [Suspect]
     Dosage: 1 G EVERY 1 TOT
     Route: 042
     Dates: start: 20071221, end: 20071221
  3. REMICADE [Suspect]
     Dosage: 210 MG EVERY 1 TOT
     Route: 042
     Dates: start: 20070814, end: 20070918
  4. HUMIRA [Suspect]
     Dosage: 40 MG EVERY 1 TOT
     Route: 058
     Dates: start: 20070524, end: 20070524
  5. METHYLPREDNISOLONE [Suspect]
     Dosage: 100 MG EVERY 1 TOT
     Route: 042
     Dates: start: 20071221, end: 20071221
  6. TRAMADOL HCL [Concomitant]
     Dosage: 25MG, FREQUENCY UNKNOWN
     Route: 048
  7. CO-CODAMOL [Concomitant]
     Route: 048
  8. DICLOFENAC [Concomitant]
     Dosage: 75MG, FREQUENCY UNKNOWN
     Route: 048

REACTIONS (1)
  - PULMONARY TUBERCULOSIS [None]
